FAERS Safety Report 18388942 (Version 1)
Quarter: 2020Q4

REPORT INFORMATION
  Report Type: Spontaneous
  Country: CA (occurrence: CA)
  Receive Date: 20201015
  Receipt Date: 20201015
  Transmission Date: 20210114
  Serious: Yes (Other)
  Sender: FDA-Public Use
  Company Number: CA-ASTRAZENECA-2020SF30795

PATIENT
  Age: 70 Year
  Sex: Female
  Weight: 94 kg

DRUGS (16)
  1. APO-CICLESONIDE [Suspect]
     Active Substance: CICLESONIDE
     Indication: PRODUCT USED FOR UNKNOWN INDICATION
     Dosage: 50.0MG UNKNOWN
     Route: 065
  2. PREDNISONE. [Suspect]
     Active Substance: PREDNISONE
     Indication: PNEUMONIA
     Dosage: 30.0MG UNKNOWN
     Route: 065
  3. FUROSEMIDE. [Suspect]
     Active Substance: FUROSEMIDE
     Indication: PRODUCT USED FOR UNKNOWN INDICATION
     Dosage: 40.0MG UNKNOWN
     Route: 065
  4. PREDNISONE. [Suspect]
     Active Substance: PREDNISONE
     Indication: PRODUCT USED FOR UNKNOWN INDICATION
     Dosage: UNKNOWN
     Route: 042
  5. MOXIFLOXACIN HYDROCHLORIDE. [Suspect]
     Active Substance: MOXIFLOXACIN HYDROCHLORIDE
     Indication: PRODUCT USED FOR UNKNOWN INDICATION
     Route: 065
  6. PREDNISONE. [Suspect]
     Active Substance: PREDNISONE
     Indication: PRODUCT USED FOR UNKNOWN INDICATION
     Dosage: 30.0MG UNKNOWN
     Route: 065
  7. PREDNISONE. [Suspect]
     Active Substance: PREDNISONE
     Indication: PNEUMONIA
     Dosage: UNKNOWN
     Route: 048
  8. PREDNISONE. [Suspect]
     Active Substance: PREDNISONE
     Indication: PNEUMONIA
     Dosage: 50.0MG UNKNOWN
     Route: 065
  9. PREDNISONE. [Suspect]
     Active Substance: PREDNISONE
     Indication: PNEUMONIA
     Dosage: UNKNOWN
     Route: 042
  10. MEPOLIZUMAB [Suspect]
     Active Substance: MEPOLIZUMAB
     Indication: ASTHMA
     Dosage: 100.0MG UNKNOWN
     Route: 042
  11. PREDNISONE. [Suspect]
     Active Substance: PREDNISONE
     Indication: PRODUCT USED FOR UNKNOWN INDICATION
     Dosage: UNKNOWN
     Route: 048
  12. PREDNISONE. [Suspect]
     Active Substance: PREDNISONE
     Indication: PRODUCT USED FOR UNKNOWN INDICATION
     Dosage: 50.0MG UNKNOWN
     Route: 065
  13. SALBUTAMOL [Suspect]
     Active Substance: ALBUTEROL
     Indication: PRODUCT USED FOR UNKNOWN INDICATION
     Dosage: 100.0MG UNKNOWN
     Route: 065
  14. BUDESONIDE+FORMOTEROL FUMARATE [Suspect]
     Active Substance: BUDESONIDE\FORMOTEROL FUMARATE
     Indication: PRODUCT USED FOR UNKNOWN INDICATION
     Dosage: 200 MICROGRAM; UNKNOWN UNKNOWN
     Route: 055
  15. MOXIFLOXACIN HYDROCHLORIDE. [Suspect]
     Active Substance: MOXIFLOXACIN HYDROCHLORIDE
     Indication: PRODUCT USED FOR UNKNOWN INDICATION
     Route: 065
  16. TIOTROPIUM [Suspect]
     Active Substance: TIOTROPIUM
     Indication: PRODUCT USED FOR UNKNOWN INDICATION
     Route: 065

REACTIONS (12)
  - Eosinophil count increased [Recovered/Resolved]
  - Respiratory tract congestion [Recovered/Resolved]
  - Depression [Recovered/Resolved]
  - Drug ineffective [Recovered/Resolved]
  - Chest discomfort [Recovered/Resolved]
  - Diabetes mellitus [Recovered/Resolved]
  - Pneumonia [Recovered/Resolved]
  - Thyroid disorder [Recovered/Resolved]
  - Asthma [Recovered/Resolved]
  - Bronchitis [Recovered/Resolved]
  - Dyspnoea [Recovered/Resolved]
  - Oropharyngeal pain [Recovered/Resolved]
